FAERS Safety Report 20295008 (Version 1)
Quarter: 2022Q1

REPORT INFORMATION
  Report Type: Spontaneous
  Country: US (occurrence: None)
  Receive Date: 20220104
  Receipt Date: 20220104
  Transmission Date: 20220423
  Serious: No
  Sender: FDA-Public Use
  Company Number: 2021A879286

PATIENT
  Sex: Male
  Weight: 124.7 kg

DRUGS (1)
  1. PULMICORT FLEXHALER [Suspect]
     Active Substance: BUDESONIDE
     Indication: Cough
     Route: 055

REACTIONS (3)
  - Cough [Unknown]
  - Wrong technique in device usage process [Unknown]
  - Device use issue [Unknown]
